FAERS Safety Report 7442409-8 (Version None)
Quarter: 2011Q2

REPORT INFORMATION
  Report Type: 
  Country: None (occurrence: None)
  Receive Date: 20110428
  Receipt Date: 20110419
  Transmission Date: 20111010
  Serious: Yes (Death, Disabling)
  Sender: FDA-Public Use
  Company Number: JP-ROCHE-769189

PATIENT
  Sex: Male
  Weight: 60 kg

DRUGS (18)
  1. AVASTIN [Suspect]
     Indication: NON-SMALL CELL LUNG CANCER
     Dosage: DRIP TIME: 90 MINUTES.
     Route: 041
     Dates: start: 20100805, end: 20100805
  2. AVASTIN [Suspect]
     Dosage: DRIP TIME: 60 MINUTES
     Route: 041
     Dates: start: 20100902, end: 20100902
  3. AVASTIN [Suspect]
     Dosage: DRIP TIMES: 30 MINUTES.
     Route: 041
     Dates: start: 20100928, end: 20110210
  4. MEDICON [Concomitant]
     Dosage: OTHER: PERORAL AGENT.
     Route: 048
     Dates: start: 20100512, end: 20100927
  5. RESTAMIN [Concomitant]
     Route: 048
     Dates: start: 20100602, end: 20100902
  6. PARAPLATIN [Suspect]
     Dosage: DOSE DISCONTINUED.
     Route: 041
     Dates: start: 20100902, end: 20100902
  7. PARAPLATIN [Suspect]
     Route: 041
     Dates: start: 20100805, end: 20100805
  8. TAXOL [Suspect]
     Route: 041
     Dates: start: 20100805, end: 20100805
  9. TAXOL [Suspect]
     Dosage: DOSE DISCONTINUED.
     Route: 041
     Dates: start: 20100902, end: 20100902
  10. JUVELA N [Concomitant]
     Route: 048
     Dates: start: 20100601, end: 20101115
  11. BONALON [Concomitant]
     Route: 048
     Dates: start: 20101125, end: 20110225
  12. TAKEPRON [Concomitant]
     Route: 048
     Dates: start: 20101125, end: 20110119
  13. AMLODIN [Concomitant]
     Dosage: DRUG: AMLODIN OD
     Route: 048
     Dates: start: 20100512, end: 20101115
  14. PARAPLATIN [Suspect]
     Dosage: DOSAGE IS UNCERTAIN.
     Route: 041
     Dates: end: 20100707
  15. GASTER D [Concomitant]
     Route: 048
     Dates: start: 20110120, end: 20110225
  16. TAXOL [Suspect]
     Dosage: DOSAGE IS UNCERTAIN.
     Route: 041
     Dates: end: 20100707
  17. MELOXICAM [Concomitant]
     Route: 048
     Dates: start: 20100601, end: 20101122
  18. AMLODIN [Concomitant]
     Route: 048
     Dates: start: 20101116, end: 20110225

REACTIONS (5)
  - SHOCK HAEMORRHAGIC [None]
  - HAEMOPTYSIS [None]
  - NEUTROPHIL COUNT DECREASED [None]
  - RADIATION PNEUMONITIS [None]
  - EPISTAXIS [None]
